FAERS Safety Report 5736139-8 (Version None)
Quarter: 2008Q2

REPORT INFORMATION
  Report Type: 
  Country: None (occurrence: None)
  Receive Date: 20080509
  Receipt Date: 20080429
  Transmission Date: 20081010
  Serious: Yes (Death)
  Sender: FDA-Public Use
  Company Number: 2008AL002802

PATIENT
  Age: 83 Year
  Sex: Female

DRUGS (5)
  1. DIGOXIN [Suspect]
     Indication: ARRHYTHMIA
     Dosage: 0.25 MG; QD; PO
     Route: 048
  2. METOPROLOL TARTRATE [Concomitant]
  3. LISINOPRIL [Concomitant]
  4. LEVOTHYROXINE SODIUM [Concomitant]
  5. CARTIA XT [Concomitant]

REACTIONS (5)
  - AMNESIA [None]
  - BACK PAIN [None]
  - DIZZINESS [None]
  - FALL [None]
  - FEELING COLD [None]
